FAERS Safety Report 8860588 (Version 1)
Quarter: 2012Q4

REPORT INFORMATION
  Report Type: 
  Country: US (occurrence: US)
  Receive Date: 20121025
  Receipt Date: 20121025
  Transmission Date: 20130627
  Serious: Yes (Other)
  Sender: FDA-Public Use
  Company Number: US-BAYER-2012-109283

PATIENT
  Age: 71 Year
  Sex: Female
  Weight: 63 kg

DRUGS (5)
  1. BAYER ADVANCED ASPIRIN EXTRA STRENGTH [Suspect]
     Indication: ARTHRITIS
     Dosage: 1 DF, ONCE, bottle count 80s
     Route: 048
     Dates: start: 20120408, end: 20120408
  2. BAYER ASPIRIN REGIMEN ADULT LOW STRENGTH [Suspect]
     Indication: ARTHRITIS
     Dosage: UNK, QD, bottle count 100s
     Route: 048
     Dates: start: 201110
  3. BAYER ASPIRIN REGIMEN ADULT LOW STRENGTH [Suspect]
     Dosage: bottle count 300s- easy open
     Route: 048
     Dates: start: 200710
  4. ARMOUR THYROID [Concomitant]
  5. ZESTRIL [Concomitant]

REACTIONS (5)
  - Disorientation [Recovered/Resolved]
  - Hearing impaired [Recovered/Resolved]
  - Dizziness [Recovered/Resolved]
  - Disturbance in attention [Recovered/Resolved]
  - No adverse event [None]
